FAERS Safety Report 6822804-8 (Version None)
Quarter: 2010Q3

REPORT INFORMATION
  Report Type: 
  Country: None (occurrence: None)
  Receive Date: 20100702
  Receipt Date: 20100618
  Transmission Date: 20110219
  Serious: Yes (Other)
  Sender: FDA-Public Use
  Company Number: 619528

PATIENT
  Sex: Female

DRUGS (10)
  1. EPINEPHRINE [Suspect]
     Indication: DRUG HALF-LIFE REDUCED
     Dates: start: 20100602
  2. EPINEPHRINE [Suspect]
     Indication: HAEMORRHAGE PROPHYLAXIS
     Dates: start: 20100602
  3. EPINEPHRINE [Suspect]
     Indication: LOCAL ANAESTHESIA
     Dates: start: 20100602
  4. EPINEPHRINE [Suspect]
     Indication: DRUG HALF-LIFE REDUCED
     Dates: start: 20100602
  5. EPINEPHRINE [Suspect]
     Indication: HAEMORRHAGE PROPHYLAXIS
     Dates: start: 20100602
  6. EPINEPHRINE [Suspect]
     Indication: LOCAL ANAESTHESIA
     Dates: start: 20100602
  7. LIDOCAINE HCL [Concomitant]
  8. SODIUM CHLORIDE (1.9% INJECTION, USP (SODIUM CHLORIDE) [Concomitant]
  9. SODIUM BICARBONATE INJ, USP (SODIUM HYDROGEN CARBONATE) [Concomitant]
  10. (HYPNOTICS AND SEDATIVES) [Concomitant]

REACTIONS (4)
  - DRUG INEFFECTIVE [None]
  - OPERATIVE HAEMORRHAGE [None]
  - PAIN [None]
  - PRODUCT MEASURED POTENCY ISSUE [None]
